FAERS Safety Report 6291210-X (Version None)
Quarter: 2009Q3

REPORT INFORMATION
  Report Type: 
  Country: None (occurrence: None)
  Receive Date: 20090730
  Receipt Date: 20090724
  Transmission Date: 20100115
  Serious: Yes (Other)
  Sender: FDA-Public Use
  Company Number: US-JNJFOC-20090708300

PATIENT
  Sex: Female

DRUGS (2)
  1. TOPAMAX [Suspect]
     Indication: EPILEPSY
     Route: 048
  2. PRIMIDONE [Concomitant]

REACTIONS (4)
  - BURNING SENSATION [None]
  - COORDINATION ABNORMAL [None]
  - INCORRECT DRUG ADMINISTRATION DURATION [None]
  - NEUROPATHY PERIPHERAL [None]
